FAERS Safety Report 8503615-4 (Version None)
Quarter: 2012Q3

REPORT INFORMATION
  Report Type: 
  Country: None (occurrence: None)
  Receive Date: 20120711
  Receipt Date: 20120706
  Transmission Date: 20120928
  Serious: Yes (Hospitalization)
  Sender: FDA-Public Use
  Company Number: PHHY2012NO058594

PATIENT
  Sex: Male

DRUGS (7)
  1. METOPROLOL SUCCINATE [Concomitant]
  2. CALCIGRAN FORTE [Concomitant]
  3. ZOLPIDEM [Concomitant]
  4. EXELON [Suspect]
     Dosage: UNK
     Route: 062
     Dates: start: 20120403
  5. OXAZEPAM [Concomitant]
  6. MONOKET OD [Concomitant]
  7. ASPIRIN [Concomitant]

REACTIONS (4)
  - AMNESIA [None]
  - SYNCOPE [None]
  - FALL [None]
  - DYSSTASIA [None]
